FAERS Safety Report 7589356-9 (Version None)
Quarter: 2011Q3

REPORT INFORMATION
  Report Type: 
  Country: None (occurrence: None)
  Receive Date: 20110705
  Receipt Date: 20110622
  Transmission Date: 20111222
  Serious: Yes (Hospitalization, Other)
  Sender: FDA-Public Use
  Company Number: US-ROCHE-728108

PATIENT
  Sex: Female
  Weight: 75.3 kg

DRUGS (6)
  1. ADDERALL 10 [Concomitant]
  2. ACCUTANE [Suspect]
     Route: 048
     Dates: start: 20050101
  3. ORTHO TRI-CYCLEN [Concomitant]
     Dates: start: 20040801
  4. ACCUTANE [Suspect]
     Indication: ACNE
     Route: 048
     Dates: start: 20040908
  5. PROZAC [Concomitant]
     Indication: DEPRESSION
  6. WELLBUTRIN [Concomitant]
     Indication: DEPRESSION

REACTIONS (10)
  - IRRITABLE BOWEL SYNDROME [None]
  - SINUSITIS [None]
  - DEPRESSION [None]
  - INFLAMMATORY BOWEL DISEASE [None]
  - HEAD INJURY [None]
  - OSTEOPENIA [None]
  - CROHN'S DISEASE [None]
  - INTESTINAL HAEMORRHAGE [None]
  - INTESTINAL OBSTRUCTION [None]
  - DRY SKIN [None]
